FAERS Safety Report 9685060 (Version 2)
Quarter: 2013Q4

REPORT INFORMATION
  Report Type: Spontaneous
  Country: CA (occurrence: CA)
  Receive Date: 20131113
  Receipt Date: 20131220
  Transmission Date: 20140711
  Serious: Yes (Hospitalization)
  Sender: FDA-Public Use
  Company Number: CA-JNJFOC-20131106266

PATIENT
  Age: 77 Year
  Sex: Female

DRUGS (8)
  1. XARELTO [Suspect]
     Indication: CEREBROVASCULAR ACCIDENT PROPHYLAXIS
     Route: 048
     Dates: start: 20121205, end: 20130118
  2. XARELTO [Suspect]
     Indication: ATRIAL FIBRILLATION
     Route: 048
     Dates: start: 20121205, end: 20130118
  3. DILTIAZEM CD [Interacting]
     Indication: PRODUCT USED FOR UNKNOWN INDICATION
     Route: 065
  4. METOPROLOL [Concomitant]
     Route: 065
  5. RAMIPRIL [Concomitant]
     Route: 065
  6. DIAMICRON MR [Concomitant]
     Route: 065
  7. METFORMIN [Concomitant]
     Route: 065
  8. LUTEIN [Concomitant]
     Route: 065

REACTIONS (15)
  - Drug interaction [Unknown]
  - Blood creatinine increased [Unknown]
  - White blood cell count decreased [Unknown]
  - Blood urea increased [Unknown]
  - Creatinine renal clearance decreased [Unknown]
  - Activated partial thromboplastin time prolonged [Unknown]
  - Dehydration [Unknown]
  - Gamma-glutamyltransferase increased [Unknown]
  - Gastrointestinal carcinoma [Unknown]
  - Haemoglobin decreased [Unknown]
  - International normalised ratio increased [Unknown]
  - Lower gastrointestinal haemorrhage [Unknown]
  - Neutrophil count increased [Unknown]
  - Small intestinal obstruction [Unknown]
  - Blood potassium decreased [Unknown]
